FAERS Safety Report 15345003 (Version 3)
Quarter: 2018Q4

REPORT INFORMATION
  Report Type: Spontaneous
  Country: US (occurrence: US)
  Receive Date: 20180903
  Receipt Date: 20181114
  Transmission Date: 20190204
  Serious: No
  Sender: FDA-Public Use
  Company Number: US-009507513-1808USA002984

PATIENT
  Sex: Male

DRUGS (6)
  1. PROVENTIL [Suspect]
     Active Substance: ALBUTEROL
     Dosage: 2 PUFFS, 4 TIMES DAILY AS NEEDED BY ORAL INHALATION
     Route: 055
     Dates: start: 2018
  2. CETIRIZINE HYDROCHLORIDE. [Concomitant]
     Active Substance: CETIRIZINE HYDROCHLORIDE
  3. FAMOTIDINE. [Concomitant]
     Active Substance: FAMOTIDINE
  4. PROVENTIL [Suspect]
     Active Substance: ALBUTEROL
     Dosage: 2 PUFFS, 4 TIMES DAILY AS NEEDED BY ORAL INHALATION
     Route: 055
     Dates: start: 2018
  5. PROVENTIL [Suspect]
     Active Substance: ALBUTEROL
     Indication: CHEST DISCOMFORT
     Dosage: 2 PUFFS, 4 TIMES DAILY AS NEEDED BY ORAL INHALATION
     Route: 055
     Dates: start: 20180630, end: 2018
  6. ZETONNA [Concomitant]
     Active Substance: CICLESONIDE

REACTIONS (6)
  - Product quality issue [Unknown]
  - Poor quality device used [Unknown]
  - Bronchial disorder [Not Recovered/Not Resolved]
  - Dyspnoea [Not Recovered/Not Resolved]
  - Wheezing [Not Recovered/Not Resolved]
  - Wrong technique in product usage process [Unknown]

NARRATIVE: CASE EVENT DATE: 2018
